FAERS Safety Report 9859174 (Version 5)
Quarter: 2014Q2

REPORT INFORMATION
  Report Type: Report from Study
  Country: US (occurrence: US)
  Receive Date: 20140131
  Receipt Date: 20140506
  Transmission Date: 20141212
  Serious: Yes (Hospitalization)
  Sender: FDA-Public Use
  Company Number: US-ACTELION-A-US2014-94020

PATIENT
  Age: 48 Year
  Sex: Female

DRUGS (5)
  1. VELETRI [Suspect]
     Indication: PULMONARY ARTERIAL HYPERTENSION
     Dosage: 42 NG/KG, PER MIN
     Route: 042
  2. VELETRI [Suspect]
     Dosage: 38 NG/KG, PER MIN
     Route: 042
     Dates: start: 20131022
  3. TRACLEER [Suspect]
     Indication: PULMONARY ARTERIAL HYPERTENSION
     Dosage: UNK
     Route: 048
  4. SILDENAFIL [Concomitant]
  5. COUMADIN [Concomitant]

REACTIONS (13)
  - H1N1 influenza [Unknown]
  - Fungal skin infection [Unknown]
  - Pneumonia [Unknown]
  - Catheter site infection [Not Recovered/Not Resolved]
  - Staphylococcal sepsis [Not Recovered/Not Resolved]
  - Catheter site rash [Not Recovered/Not Resolved]
  - Dizziness [Not Recovered/Not Resolved]
  - Pyrexia [Not Recovered/Not Resolved]
  - White blood cell count increased [Not Recovered/Not Resolved]
  - Infusion site discolouration [Not Recovered/Not Resolved]
  - Catheter culture positive [Not Recovered/Not Resolved]
  - Blood culture negative [Not Recovered/Not Resolved]
  - Injection site dryness [Not Recovered/Not Resolved]
